FAERS Safety Report 9392976 (Version 1)
Quarter: 2013Q3

REPORT INFORMATION
  Report Type: Spontaneous
  Country: US (occurrence: US)
  Receive Date: 20130710
  Receipt Date: 20130710
  Transmission Date: 20140515
  Serious: No
  Sender: FDA-Public Use
  Company Number: US-BAYER-2013-080615

PATIENT
  Sex: Male

DRUGS (1)
  1. AVELOX [Suspect]
     Dosage: UNK
     Route: 048
     Dates: start: 201306

REACTIONS (5)
  - Eczema [None]
  - Urticaria [None]
  - Hallucination [None]
  - Tremor [None]
  - Insomnia [None]
